FAERS Safety Report 13568784 (Version 1)
Quarter: 2017Q2

REPORT INFORMATION
  Report Type: Spontaneous
  Country: US (occurrence: US)
  Receive Date: 20170522
  Receipt Date: 20170522
  Transmission Date: 20170830
  Serious: No
  Sender: FDA-Public Use
  Company Number: US-NEOS THERAPEUTICS, LP-2017NEO00031

PATIENT
  Age: 35 Year
  Sex: Male
  Weight: 46.71 kg

DRUGS (3)
  1. VYVANSE [Concomitant]
     Active Substance: LISDEXAMFETAMINE DIMESYLATE
  2. ADZENYS XR-ODT [Suspect]
     Active Substance: AMPHETAMINE
     Indication: ATTENTION DEFICIT/HYPERACTIVITY DISORDER
     Dosage: 12.5 MG, 1X/DAY
     Route: 048
     Dates: start: 20170406, end: 20170406
  3. ADZENYS XR-ODT [Suspect]
     Active Substance: AMPHETAMINE
     Dosage: 12.5 MG, 1X/DAY
     Route: 048
     Dates: start: 20170410, end: 20170411

REACTIONS (5)
  - Dyspnoea [Recovered/Resolved]
  - Panic reaction [Recovered/Resolved]
  - Fatigue [Recovered/Resolved]
  - Chest discomfort [Recovered/Resolved]
  - Sleep disorder [Recovered/Resolved]

NARRATIVE: CASE EVENT DATE: 20170407
